FAERS Safety Report 7651267-8 (Version None)
Quarter: 2011Q3

REPORT INFORMATION
  Report Type: 
  Country: None (occurrence: None)
  Receive Date: 20110727
  Receipt Date: 20110712
  Transmission Date: 20111222
  Serious: Yes (Life-Threatening)
  Sender: FDA-Public Use
  Company Number: 1000022334

PATIENT
  Age: 81 Year
  Sex: Female
  Weight: 70 kg

DRUGS (2)
  1. VIANI (SALMETEROL, FLUTICASONE) [Concomitant]
  2. ROFLUMILAST (ROFLUMILAST) (TABLETS) [Suspect]
     Indication: CHRONIC OBSTRUCTIVE PULMONARY DISEASE
     Dosage: 1 DOSAGE FORM (1 DOSAGE FORMS, 1 IN 1 D)
     Dates: start: 20101001, end: 20110601

REACTIONS (3)
  - CHEST PAIN [None]
  - ANGINA PECTORIS [None]
  - MUSCLE SPASMS [None]
